FAERS Safety Report 17520686 (Version 1)
Quarter: 2020Q1

REPORT INFORMATION
  Report Type: Spontaneous
  Country: US (occurrence: US)
  Receive Date: 20200310
  Receipt Date: 20200310
  Transmission Date: 20200409
  Serious: No
  Sender: FDA-Public Use
  Company Number: US-PFIZER INC-2020101928

PATIENT
  Age: 76 Year
  Sex: Male
  Weight: 85.28 kg

DRUGS (1)
  1. NITROSTAT [Suspect]
     Active Substance: NITROGLYCERIN
     Indication: CHEST PAIN
     Dosage: 0.4 MG, AS NEEDED (0.4MG BY MOUTH AS NEEDED)
     Route: 060

REACTIONS (1)
  - Cardiac disorder [Unknown]
